FAERS Safety Report 25930245 (Version 1)
Quarter: 2025Q4

REPORT INFORMATION
  Report Type: Report from Study
  Country: CA (occurrence: CA)
  Receive Date: 20251016
  Receipt Date: 20251016
  Transmission Date: 20260118
  Serious: Yes (Death, Hospitalization, Other)
  Sender: AMGEN
  Company Number: CA-AMGEN-CANSL2025095640

PATIENT
  Age: 32 Year
  Sex: Female
  Weight: 74 kg

DRUGS (2)
  1. ADALIMUMAB [Suspect]
     Active Substance: ADALIMUMAB
     Indication: Ankylosing spondylitis
     Dosage: 40 MILLIGRAM/0.8 ML, Q2WK
     Route: 065
     Dates: start: 20250206
  2. ADALIMUMAB [Suspect]
     Active Substance: ADALIMUMAB
     Dosage: 40 MILLIGRAM, Q2WK
     Route: 065
     Dates: start: 2025, end: 2025

REACTIONS (9)
  - Death [Fatal]
  - Lower respiratory tract infection [Fatal]
  - Upper respiratory tract infection [Fatal]
  - Adenocarcinoma metastatic [Fatal]
  - Musculoskeletal stiffness [Fatal]
  - Pain [Fatal]
  - Discomfort [Fatal]
  - Myalgia [Fatal]
  - Maternal exposure during pregnancy [Fatal]

NARRATIVE: CASE EVENT DATE: 20250101
